FAERS Safety Report 21433026 (Version 1)
Quarter: 2022Q4

REPORT INFORMATION
  Report Type: Spontaneous
  Country: US (occurrence: US)
  Receive Date: 20221010
  Receipt Date: 20221010
  Transmission Date: 20230113
  Serious: No
  Sender: FDA-Public Use
  Company Number: US-CHIESI-2021CHF04545

PATIENT
  Sex: Male
  Weight: 20 kg

DRUGS (4)
  1. FERRIPROX [Suspect]
     Active Substance: DEFERIPRONE
     Indication: Thalassaemia beta
     Dosage: 520 MILLIGRAM, TID
     Route: 048
     Dates: start: 20210428
  2. FERRIPROX [Suspect]
     Active Substance: DEFERIPRONE
     Indication: Haemochromatosis
  3. FERRIPROX [Suspect]
     Active Substance: DEFERIPRONE
     Indication: Transfusion
  4. VITAMIN D NOS [Concomitant]
     Active Substance: VITAMIN D NOS
     Indication: Product used for unknown indication
     Dosage: UNK

REACTIONS (1)
  - Chromaturia [Unknown]
